FAERS Safety Report 19724188 (Version 1)
Quarter: 2021Q3

REPORT INFORMATION
  Report Type: Other
  Country: IT (occurrence: IT)
  Receive Date: 20210820
  Receipt Date: 20210820
  Transmission Date: 20211014
  Serious: Yes (Other)
  Sender: FDA-Public Use
  Company Number: IT-ROCHE-2892952

PATIENT

DRUGS (1)
  1. RITUXIMAB. [Suspect]
     Active Substance: RITUXIMAB
     Indication: WARM TYPE HAEMOLYTIC ANAEMIA
     Dosage: LOW?DOSE RITUXIMAB: 100 MG WEEKLY FOR 4 WEEKS
     Route: 041

REACTIONS (4)
  - Pancytopenia [Unknown]
  - Therapeutic response decreased [Unknown]
  - Aplastic anaemia [Unknown]
  - Off label use [Unknown]
